FAERS Safety Report 7744086-5 (Version None)
Quarter: 2011Q3

REPORT INFORMATION
  Report Type: 
  Country: None (occurrence: None)
  Receive Date: 20110912
  Receipt Date: 20110902
  Transmission Date: 20111222
  Serious: Yes (Hospitalization)
  Sender: FDA-Public Use
  Company Number: US-AMGEN-USASP2011037130

PATIENT
  Age: 49 Year
  Sex: Female

DRUGS (3)
  1. TREXALL [Concomitant]
     Dosage: 2.5 MG, UNK
     Dates: start: 20090101
  2. ENBREL [Suspect]
     Indication: RHEUMATOID ARTHRITIS
     Dosage: 50 MG, QWK
     Dates: start: 20100219
  3. TREXALL [Concomitant]
     Dosage: 6 MG, UNK

REACTIONS (2)
  - RENAL FAILURE [None]
  - BIPOLAR I DISORDER [None]
